FAERS Safety Report 23404053 (Version 1)
Quarter: 2024Q1

REPORT INFORMATION
  Report Type: Spontaneous
  Country: US (occurrence: US)
  Receive Date: 20240116
  Receipt Date: 20240116
  Transmission Date: 20240409
  Serious: No
  Sender: FDA-Public Use
  Company Number: US-BIOGEN-2023BI01222577

PATIENT
  Sex: Female

DRUGS (16)
  1. VUMERITY [Suspect]
     Active Substance: DIROXIMEL FUMARATE
     Indication: Multiple sclerosis
     Route: 050
     Dates: start: 20230816
  2. VUMERITY [Suspect]
     Active Substance: DIROXIMEL FUMARATE
     Dosage: MAINTENANCE DOSE
     Route: 050
     Dates: start: 20230912, end: 20240111
  3. OLOPATADINE HYDROCHLORIDE [Concomitant]
     Active Substance: OLOPATADINE HYDROCHLORIDE
     Indication: Product used for unknown indication
     Dosage: REFRESH OLOP ATADINE HCL OPH DROPS
     Route: 050
  4. ONDANSETRON HYDROCHLORIDE [Concomitant]
     Active Substance: ONDANSETRON HYDROCHLORIDE
     Indication: Product used for unknown indication
     Route: 050
  5. SPIRONOLACTONE [Concomitant]
     Active Substance: SPIRONOLACTONE
     Indication: Product used for unknown indication
     Route: 050
  6. LOSARTAN POTASSIUM [Concomitant]
     Active Substance: LOSARTAN POTASSIUM
     Indication: Product used for unknown indication
     Route: 050
  7. HYDROCHLOROTHIAZIDE [Concomitant]
     Active Substance: HYDROCHLOROTHIAZIDE
     Indication: Product used for unknown indication
     Route: 050
  8. CLARITIN [Concomitant]
     Active Substance: LORATADINE
     Indication: Product used for unknown indication
     Route: 050
  9. MELOXICAM [Concomitant]
     Active Substance: MELOXICAM
     Indication: Product used for unknown indication
     Route: 050
  10. ZANAFLEX [Concomitant]
     Active Substance: TIZANIDINE HYDROCHLORIDE
     Indication: Product used for unknown indication
     Route: 050
  11. PRILOSEC [Concomitant]
     Active Substance: OMEPRAZOLE MAGNESIUM
     Indication: Product used for unknown indication
     Route: 050
  12. VITAMIN D3 [Concomitant]
     Active Substance: CHOLECALCIFEROL
     Indication: Product used for unknown indication
     Dosage: 2,000UNIT
     Route: 050
  13. APPLE CIDER VINEGAR [Concomitant]
     Active Substance: APPLE CIDER VINEGAR
     Indication: Product used for unknown indication
     Route: 050
  14. PAXLOVID [Concomitant]
     Active Substance: NIRMATRELVIR\RITONAVIR
     Indication: Product used for unknown indication
     Route: 050
  15. RITONAVIR [Concomitant]
     Active Substance: RITONAVIR
     Indication: Product used for unknown indication
     Route: 050
  16. BOTOX [Concomitant]
     Active Substance: ONABOTULINUMTOXINA
     Route: 050

REACTIONS (44)
  - Product dose omission in error [Unknown]
  - Underdose [Recovered/Resolved]
  - Abdominal discomfort [Unknown]
  - Illness [Unknown]
  - Oropharyngeal discomfort [Unknown]
  - Malaise [Unknown]
  - Dizziness [Unknown]
  - Dental discomfort [Unknown]
  - Ocular discomfort [Unknown]
  - Toothache [Unknown]
  - Paranasal sinus discomfort [Unknown]
  - Pain [Unknown]
  - Feeding disorder [Unknown]
  - Weight decreased [Unknown]
  - Chest discomfort [Unknown]
  - Eye swelling [Unknown]
  - Headache [Unknown]
  - Balance disorder [Unknown]
  - Brain fog [Unknown]
  - Anger [Unknown]
  - COVID-19 [Unknown]
  - Upper respiratory tract congestion [Unknown]
  - Dysphagia [Unknown]
  - Photophobia [Unknown]
  - Decreased appetite [Unknown]
  - Depression [Unknown]
  - Visual brightness [Unknown]
  - Miliaria [Unknown]
  - Superficial vein thrombosis [Unknown]
  - Fatigue [Unknown]
  - Heart rate increased [Unknown]
  - Constipation [Unknown]
  - Micturition disorder [Unknown]
  - Gastrointestinal disorder [Unknown]
  - Nausea [Unknown]
  - Liver function test increased [Unknown]
  - Abdominal pain [Unknown]
  - Vomiting [Unknown]
  - Rash [Unknown]
  - Pharyngeal swelling [Unknown]
  - Feeling hot [Unknown]
  - Rhinorrhoea [Unknown]
  - Diarrhoea [Unknown]
  - Hot flush [Unknown]

NARRATIVE: CASE EVENT DATE: 20230101
